FAERS Safety Report 6189379-0 (Version None)
Quarter: 2009Q2

REPORT INFORMATION
  Report Type: 
  Country: None (occurrence: None)
  Receive Date: 20090512
  Receipt Date: 20090428
  Transmission Date: 20091009
  Serious: Yes (Other)
  Sender: FDA-Public Use
  Company Number: 09-000677

PATIENT
  Age: 18 Year
  Sex: Female
  Weight: 62.6 kg

DRUGS (2)
  1. LOESTRIN 24 FE (NORETHINDRONE ACETATE, ETHINYL ESTRADIOL, FERROUS FUMA [Suspect]
     Indication: DYSMENORRHOEA
     Dosage: 20/1000 UG, QD, ORAL
     Route: 048
     Dates: start: 20080601, end: 20090301
  2. ALBUTEROL [Concomitant]

REACTIONS (5)
  - INFLUENZA [None]
  - METRORRHAGIA [None]
  - MONONUCLEOSIS SYNDROME [None]
  - WEIGHT INCREASED [None]
  - WITHDRAWAL BLEED [None]
